FAERS Safety Report 8523429-9 (Version None)
Quarter: 2012Q3

REPORT INFORMATION
  Report Type: 
  Country: None (occurrence: None)
  Receive Date: 20120720
  Receipt Date: 20120716
  Transmission Date: 20120928
  Serious: Yes (Other)
  Sender: FDA-Public Use
  Company Number: 2012SP001995

PATIENT
  Age: 74 Year
  Sex: Female

DRUGS (1)
  1. LUNESTA [Suspect]
     Indication: PRODUCT USED FOR UNKNOWN INDICATION
     Route: 048
     Dates: start: 20110101

REACTIONS (2)
  - CORONARY ARTERY OCCLUSION [None]
  - MYOCARDIAL INFARCTION [None]
